FAERS Safety Report 8604218-3 (Version None)
Quarter: 2012Q3

REPORT INFORMATION
  Report Type: 
  Country: None (occurrence: None)
  Receive Date: 20120820
  Receipt Date: 20120816
  Transmission Date: 20120928
  Serious: No
  Sender: FDA-Public Use
  Company Number: US-PFIZER INC-2012202021

PATIENT
  Age: 66 Year
  Sex: Male
  Weight: 58.957 kg

DRUGS (1)
  1. VENLAFAXINE HCL [Suspect]
     Indication: PAIN
     Dosage: 25 MG, DAILY
     Dates: start: 20120101

REACTIONS (3)
  - OFF LABEL USE [None]
  - SOMNOLENCE [None]
  - NAUSEA [None]
